FAERS Safety Report 7774539 (Version 2)
Quarter: 2014Q1

REPORT INFORMATION
  Report Type: Report from Study
  Country: DE (occurrence: DE)
  Receive Date: 20110126
  Receipt Date: 20140327
  Transmission Date: 20141002
  Serious: Yes (Hospitalization, Other)
  Sender: FDA-Public Use
  Company Number: DE-ROCHE-754101

PATIENT
  Age: 55 Year
  Sex: Male
  Weight: 88.1 kg

DRUGS (4)
  1. MYCOPHENOLATE MOFETIL [Suspect]
     Indication: RENAL TRANSPLANT
     Dosage: DOSE 1000, UNIT AND FREQUENCY WAS NOT PROVIDED.
     Route: 048
  2. BASILIXIMAB [Suspect]
     Indication: RENAL TRANSPLANT
     Dosage: DATE OF LAST DOSE PRIOR TO SAE WAS 10 JUNE 2010.
     Route: 042
  3. TACROLIMUS [Suspect]
     Indication: RENAL TRANSPLANT
     Route: 048
  4. PREDNISOLONE [Suspect]
     Indication: RENAL TRANSPLANT
     Route: 048
     Dates: start: 20100606

REACTIONS (3)
  - Bone marrow oedema [Not Recovered/Not Resolved]
  - Pain in extremity [Not Recovered/Not Resolved]
  - Osteonecrosis [Recovered/Resolved]
